FAERS Safety Report 4272923-8 (Version None)
Quarter: 2004Q1

REPORT INFORMATION
  Report Type: 
  Country: None (occurrence: None)
  Receive Date: 20040114
  Receipt Date: 20040105
  Transmission Date: 20041129
  Serious: Yes (Other)
  Sender: FDA-Public Use
  Company Number: 2004192857GB

PATIENT
  Age: 40 Year
  Sex: Female

DRUGS (3)
  1. DEPO-PROVERA [Suspect]
     Indication: CONTRACEPTION
     Dosage: SEE IMAGE, INTRAMUSCULAR
     Route: 030
     Dates: start: 20030501, end: 20030501
  2. DEPO-PROVERA [Suspect]
     Indication: CONTRACEPTION
     Dosage: SEE IMAGE, INTRAMUSCULAR
     Route: 030
     Dates: start: 20030701, end: 20030701
  3. ANAESTHETICS [Concomitant]

REACTIONS (2)
  - ANAPHYLACTIC REACTION [None]
  - RESPIRATORY FAILURE [None]
